FAERS Safety Report 12672131 (Version 1)
Quarter: 2016Q3

REPORT INFORMATION
  Report Type: Spontaneous
  Country: US (occurrence: US)
  Receive Date: 20160822
  Receipt Date: 20160822
  Transmission Date: 20161109
  Serious: No
  Sender: FDA-Public Use
  Company Number: US-PFIZER INC-2016394335

PATIENT
  Age: 53 Year
  Sex: Male
  Weight: 77.11 kg

DRUGS (1)
  1. ADVIL [Suspect]
     Active Substance: IBUPROFEN
     Dosage: 200 MG, TAKES QUANTITY TWO, TAKES ONLY WHEN NEEDED ONCE IN A WHILE
     Route: 048
     Dates: start: 1990

REACTIONS (4)
  - Product colour issue [Unknown]
  - Nausea [Recovering/Resolving]
  - Poor quality drug administered [Unknown]
  - Dyspepsia [Not Recovered/Not Resolved]

NARRATIVE: CASE EVENT DATE: 20160810
